FAERS Safety Report 14380038 (Version 3)
Quarter: 2018Q3

REPORT INFORMATION
  Report Type: Spontaneous
  Country: US (occurrence: US)
  Receive Date: 20180112
  Receipt Date: 20180810
  Transmission Date: 20181010
  Serious: No
  Sender: FDA-Public Use
  Company Number: US-PFIZER INC-2018013785

PATIENT
  Age: 57 Year
  Sex: Female
  Weight: 63 kg

DRUGS (14)
  1. IBRANCE [Interacting]
     Active Substance: PALBOCICLIB
     Dosage: UNK
     Dates: start: 20180504
  2. FASLODEX [Interacting]
     Active Substance: FULVESTRANT
     Indication: OESTROGEN RECEPTOR POSITIVE BREAST CANCER
     Dosage: 250 MG, MONTHLY (ONCE A MONTH)
     Dates: start: 201711
  3. MORPHINE SULFATE. [Concomitant]
     Active Substance: MORPHINE SULFATE
     Dosage: 15 MG, UNK
  4. XGEVA [Interacting]
     Active Substance: DENOSUMAB
     Indication: OESTROGEN RECEPTOR POSITIVE BREAST CANCER
     Dosage: UNK, ONCE A MONTH
     Dates: start: 201711
  5. XGEVA [Interacting]
     Active Substance: DENOSUMAB
     Dosage: UNK
     Dates: start: 20180503
  6. FASLODEX [Interacting]
     Active Substance: FULVESTRANT
     Dosage: UNK (SHOTS THIS AM)
     Dates: start: 20180110
  7. MORPHINE SULFATE. [Concomitant]
     Active Substance: MORPHINE SULFATE
     Indication: BACK PAIN
     Dosage: UNK, AS NEEDED (1?2 TABLETS 4 TIMES A DAY)
     Dates: start: 201711
  8. ANTIVERT [Concomitant]
     Active Substance: MECLIZINE HYDROCHLORIDE
     Dosage: UNK
     Dates: start: 20171108
  9. XGEVA [Interacting]
     Active Substance: DENOSUMAB
     Dosage: UNK (SHOTS THIS AM)
     Dates: start: 20180110
  10. XGEVA [Interacting]
     Active Substance: DENOSUMAB
     Dosage: UNK
     Dates: start: 20180207, end: 20180209
  11. IBRANCE [Suspect]
     Active Substance: PALBOCICLIB
     Indication: OESTROGEN RECEPTOR POSITIVE BREAST CANCER
     Dosage: 125 MG, CYCLIC (ONCE DAILY FOR 21 DAYS AND THEN 7 DAYS OFF)
     Dates: start: 20171108
  12. FASLODEX [Interacting]
     Active Substance: FULVESTRANT
     Dosage: UNK
     Dates: start: 20180207, end: 20180209
  13. FASLODEX [Interacting]
     Active Substance: FULVESTRANT
     Dosage: UNK
     Dates: start: 20180503
  14. MILK OF MAGNESIA [Concomitant]
     Active Substance: MAGNESIUM HYDROXIDE
     Dosage: UNK

REACTIONS (35)
  - Musculoskeletal pain [Not Recovered/Not Resolved]
  - Diarrhoea [Unknown]
  - Stomatitis [Unknown]
  - Musculoskeletal discomfort [Unknown]
  - Weight increased [Not Recovered/Not Resolved]
  - Axillary pain [Unknown]
  - Pain in jaw [Unknown]
  - Contusion [Unknown]
  - Pain in extremity [Not Recovered/Not Resolved]
  - Constipation [Not Recovered/Not Resolved]
  - Nausea [Unknown]
  - Back pain [Not Recovered/Not Resolved]
  - Arthralgia [Not Recovered/Not Resolved]
  - Paraesthesia [Not Recovered/Not Resolved]
  - Insomnia [Unknown]
  - Breast tenderness [Unknown]
  - Pain [Unknown]
  - Chest discomfort [Not Recovered/Not Resolved]
  - Condition aggravated [Unknown]
  - Alopecia [Unknown]
  - Fatigue [Not Recovered/Not Resolved]
  - Night sweats [Unknown]
  - Tongue disorder [Unknown]
  - Breast pain [Unknown]
  - Injection site mass [Unknown]
  - Headache [Unknown]
  - Hypoaesthesia [Unknown]
  - Limb injury [Unknown]
  - Skin lesion [Unknown]
  - Abdominal pain upper [Not Recovered/Not Resolved]
  - Abdominal distension [Not Recovered/Not Resolved]
  - Drug interaction [Not Recovered/Not Resolved]
  - Muscle spasms [Unknown]
  - Fibromyalgia [Unknown]
  - Medial tibial stress syndrome [Unknown]

NARRATIVE: CASE EVENT DATE: 201711
